FAERS Safety Report 18066698 (Version 2)
Quarter: 2023Q1

REPORT INFORMATION
  Report Type: Spontaneous
  Country: PL (occurrence: PL)
  Receive Date: 20200724
  Receipt Date: 20230130
  Transmission Date: 20230418
  Serious: Yes (Congenital Anomaly)
  Sender: FDA-Public Use
  Company Number: None

PATIENT
  Age: 38 Year
  Sex: Female
  Weight: 52 kg

DRUGS (7)
  1. DOCETAXEL [Suspect]
     Active Substance: DOCETAXEL
     Indication: Breast cancer female
     Dosage: 113 MG
     Route: 042
     Dates: start: 20170802, end: 20170802
  2. TRASTUZUMAB [Suspect]
     Active Substance: TRASTUZUMAB
     Indication: Breast cancer female
     Dosage: 4.6 MG
     Route: 042
     Dates: start: 20170802, end: 20170802
  3. PERTUZUMAB [Suspect]
     Active Substance: PERTUZUMAB
     Indication: Breast cancer female
     Dosage: 840 MG
     Route: 042
     Dates: start: 20170802, end: 20170802
  4. CIPROFLOXACIN [Concomitant]
     Active Substance: CIPROFLOXACIN
     Indication: Febrile neutropenia
     Dosage: 500 MG, Q12H
     Route: 048
     Dates: start: 20170811, end: 20170815
  5. FLUCONAZOLE [Concomitant]
     Active Substance: FLUCONAZOLE
     Indication: Febrile neutropenia
     Dosage: 50 MG, Q12H
     Route: 048
     Dates: start: 20170811, end: 20170815
  6. FILGRASTIM [Concomitant]
     Active Substance: FILGRASTIM
     Indication: Febrile neutropenia
     Dosage: 48 MILLION UNITS
     Route: 058
     Dates: start: 20170811, end: 20170814
  7. NYSTATYNA [Concomitant]
     Indication: Febrile neutropenia
     Dosage: UNK (2 400 000 J.M./5 G, GRANULAT DO SPORZADZENIA ZAWIESINY DOUSTNEJ I STOSOWANIA W JAMIE USTNEJ)
     Route: 065

REACTIONS (1)
  - Abortion spontaneous [Recovered/Resolved]

NARRATIVE: CASE EVENT DATE: 20170828
